FAERS Safety Report 8320935-7 (Version None)
Quarter: 2012Q2

REPORT INFORMATION
  Report Type: 
  Country: None (occurrence: None)
  Receive Date: 20120430
  Receipt Date: 20120424
  Transmission Date: 20120825
  Serious: Yes (Hospitalization, Other)
  Sender: FDA-Public Use
  Company Number: PHHY2012BR035173

PATIENT
  Age: 85 Year
  Sex: Female

DRUGS (1)
  1. FORMOTEROL FUMARATE [Suspect]
     Indication: ASTHMA
     Dosage: UNK UKN, Q12H
     Dates: start: 20080101

REACTIONS (2)
  - LUNG DISORDER [None]
  - CARDIAC ARREST [None]
